FAERS Safety Report 18740238 (Version 1)
Quarter: 2021Q1

REPORT INFORMATION
  Report Type: Spontaneous
  Country: DE (occurrence: DE)
  Receive Date: 20210114
  Receipt Date: 20210114
  Transmission Date: 20210419
  Serious: Yes (Other)
  Sender: FDA-Public Use
  Company Number: DE-PFIZER INC-2021013365

PATIENT
  Age: 46 Year
  Sex: Female

DRUGS (6)
  1. XGEVA [Suspect]
     Active Substance: DENOSUMAB
     Indication: METASTASES TO BONE
     Dosage: UNK
     Route: 065
     Dates: start: 201802
  2. PALBOCICLIB [Concomitant]
     Active Substance: PALBOCICLIB
     Dosage: UNK
  3. PACLITAXEL. [Concomitant]
     Active Substance: PACLITAXEL
     Dosage: UNK
  4. TAMOXIFEN [Concomitant]
     Active Substance: TAMOXIFEN
     Dosage: UNK
  5. LETROZOL [Concomitant]
     Active Substance: LETROZOLE
     Dosage: UNK
  6. BEVACIZUMAB. [Suspect]
     Active Substance: BEVACIZUMAB
     Indication: BREAST CANCER METASTATIC
     Dosage: UNK
     Route: 065
     Dates: start: 202001

REACTIONS (6)
  - Nausea [Unknown]
  - Neutropenia [Unknown]
  - Platelet count abnormal [Unknown]
  - Anaemia [Unknown]
  - Off label use [Unknown]
  - Neoplasm progression [Recovering/Resolving]

NARRATIVE: CASE EVENT DATE: 2020
